FAERS Safety Report 19433134 (Version 1)
Quarter: 2021Q2

REPORT INFORMATION
  Report Type: Spontaneous
  Country: US (occurrence: US)
  Receive Date: 20210617
  Receipt Date: 20210617
  Transmission Date: 20210717
  Serious: No
  Sender: FDA-Public Use
  Company Number: None

PATIENT
  Age: 72 Year
  Sex: Female
  Weight: 49.9 kg

DRUGS (8)
  1. LEVOTHYROXINE. [Concomitant]
     Active Substance: LEVOTHYROXINE
  2. D [Concomitant]
  3. LUTEIN [Concomitant]
     Active Substance: LUTEIN
  4. BROMELAIN [Concomitant]
     Active Substance: BROMELAINS
  5. EZETEMIDE [Concomitant]
  6. CALCIUM [Concomitant]
     Active Substance: CALCIUM
  7. GERICARE ARTIFICIAL TEARS LUBRICANT [Suspect]
     Active Substance: GLYCERIN\HYPROMELLOSES\POLYETHYLENE GLYCOL 400
     Indication: DRY EYE
     Dosage: ?          QUANTITY:2 GTT DROP(S);?
     Route: 047
     Dates: start: 20210515, end: 20210608
  8. C [Concomitant]

REACTIONS (4)
  - Paradoxical drug reaction [None]
  - Dry eye [None]
  - Dark circles under eyes [None]
  - Eye pain [None]

NARRATIVE: CASE EVENT DATE: 20210515
